FAERS Safety Report 9219626 (Version 1)
Quarter: 2013Q2

REPORT INFORMATION
  Report Type: Spontaneous
  Country: US (occurrence: None)
  Receive Date: 20130405
  Receipt Date: 20130405
  Transmission Date: 20140414
  Serious: Yes (Other)
  Sender: FDA-Public Use
  Company Number: CLCY20130064

PATIENT
  Age: 63 Year
  Sex: Female
  Weight: 75.75 kg

DRUGS (10)
  1. COLCRYS [Suspect]
     Indication: PRODUCT USED FOR UNKNOWN INDICATION
  2. METHOTREXATE [Suspect]
     Indication: RHEUMATOID ARTHRITIS
     Dosage: 6 IN 1 WEEK
  3. HUMIRA [Suspect]
     Indication: RHEUMATOID ARTHRITIS
     Dosage: 1 IN 2 WEEKS
     Dates: start: 2010
  4. ARTHROTEC (DICLOFENAC SODIUM/MISOPROSTOL) [Concomitant]
  5. WATER PILL [Concomitant]
  6. TEKTURNA (ALISKIREN FUMARATE) [Concomitant]
  7. ANTIBIOTIC [Concomitant]
  8. ALLOPURINOL [Concomitant]
  9. LEFLUNOMIDE [Concomitant]
  10. NSAID [Concomitant]

REACTIONS (5)
  - Sjogren^s syndrome [None]
  - Dry eye [None]
  - Diarrhoea [None]
  - Osteopenia [None]
  - Arthralgia [None]
